FAERS Safety Report 5626113-4 (Version None)
Quarter: 2008Q1

REPORT INFORMATION
  Report Type: 
  Country: None (occurrence: None)
  Receive Date: 20080213
  Receipt Date: 20080213
  Transmission Date: 20080703
  Serious: Yes (Hospitalization, Disabling)
  Sender: FDA-Public Use
  Company Number: None

PATIENT
  Age: 29 Year
  Sex: Female
  Weight: 58.9676 kg

DRUGS (1)
  1. CYMBALTA [Suspect]
     Indication: ANTIDEPRESSANT THERAPY
     Dosage: 1 AM PO
     Route: 048
     Dates: start: 20080209, end: 20080209

REACTIONS (4)
  - ANXIETY [None]
  - DYSTONIA [None]
  - ECONOMIC PROBLEM [None]
  - FEAR [None]
